FAERS Safety Report 18046826 (Version 8)
Quarter: 2020Q3

REPORT INFORMATION
  Report Type: Report from Study
  Country: DE (occurrence: DE)
  Receive Date: 20200721
  Receipt Date: 20200827
  Transmission Date: 20201103
  Serious: Yes (Death, Life-Threatening, Hospitalization)
  Sender: FDA-Public Use
  Company Number: DE-B.I. PHARMACEUTICALS,INC./RIDGEFIELD-2020-BI-036745

PATIENT
  Age: 61 Year
  Sex: Male
  Weight: 58 kg

DRUGS (2)
  1. DOCETAXEL. [Suspect]
     Active Substance: DOCETAXEL
     Indication: LUNG ADENOCARCINOMA
     Dosage: FORMULATION: LIQUID; UNIT DOSE: 75 MG/M2 BODY SURFACE AREA
     Route: 042
     Dates: start: 20200701, end: 20200701
  2. VARGATEF [Suspect]
     Active Substance: NINTEDANIB
     Indication: LUNG ADENOCARCINOMA
     Route: 048
     Dates: start: 20200702, end: 20200702

REACTIONS (4)
  - Neutropenia [Recovered/Resolved]
  - Agranulocytosis [Not Recovered/Not Resolved]
  - Sepsis [Fatal]
  - Pneumonia [Not Recovered/Not Resolved]

NARRATIVE: CASE EVENT DATE: 20200706
